FAERS Safety Report 18594263 (Version 2)
Quarter: 2021Q1

REPORT INFORMATION
  Report Type: Report from Study
  Country: US (occurrence: US)
  Receive Date: 20201209
  Receipt Date: 20210218
  Transmission Date: 20210419
  Serious: Yes (Hospitalization, Other)
  Sender: FDA-Public Use
  Company Number: US-AUROBINDO-AUR-APL-2020-060344

PATIENT
  Age: 43 Year
  Sex: Female
  Weight: 72.6 kg

DRUGS (1)
  1. BELINOSTAT [Suspect]
     Active Substance: BELINOSTAT
     Indication: PERIPHERAL T-CELL LYMPHOMA UNSPECIFIED
     Dosage: 1790 MILLIGRAM 5 DAY CYCLES EVERY 21 DAYS
     Route: 042
     Dates: start: 20201026

REACTIONS (1)
  - Hydrocephalus [Recovered/Resolved with Sequelae]

NARRATIVE: CASE EVENT DATE: 20201127
